FAERS Safety Report 19911866 (Version 2)
Quarter: 2024Q3

REPORT INFORMATION
  Report Type: Other
  Country: HR (occurrence: HR)
  Receive Date: 20211004
  Receipt Date: 20240919
  Transmission Date: 20241017
  Serious: Yes (Other)
  Sender: STRIDES
  Company Number: HR-BASILEA PHARMACEUTICA DEUTSCHLAND GMBH-HR-BAS-21-00677

PATIENT
  Age: 63 Year
  Sex: Male

DRUGS (10)
  1. VANCOMYCIN [Suspect]
     Active Substance: VANCOMYCIN
     Indication: Central nervous system infection
     Dosage: UNK
     Route: 065
  2. ISAVUCONAZONIUM SULFATE [Suspect]
     Active Substance: ISAVUCONAZONIUM SULFATE
     Indication: Fungal infection
     Dosage: 200 MILLIGRAM, TID, (3X/DAY) (CONCENTRATE FOR SOLUTION FOR INFUSION)
     Route: 042
  3. ISAVUCONAZONIUM SULFATE [Suspect]
     Active Substance: ISAVUCONAZONIUM SULFATE
     Dosage: 200 MILLIGRAM, QD, (1X/DAY) (CONCENTRATE FOR SOLUTION FOR INFUSION)
     Route: 042
  4. ISAVUCONAZONIUM SULFATE [Suspect]
     Active Substance: ISAVUCONAZONIUM SULFATE
     Dosage: 200 MILLIGRAM, QD, CAPSULE
     Route: 042
  5. ISAVUCONAZONIUM SULFATE [Suspect]
     Active Substance: ISAVUCONAZONIUM SULFATE
     Dosage: 200 MILLIGRAM, EVERY 8 HOURS (TID)
     Route: 042
  6. MEROPENEM [Suspect]
     Active Substance: MEROPENEM
     Indication: Central nervous system infection
     Dosage: UNK
     Route: 065
  7. MEROPENEM [Suspect]
     Active Substance: MEROPENEM
     Indication: Central nervous system infection
     Dosage: UNK
     Route: 065
  8. AMPHOTERICIN B [Suspect]
     Active Substance: AMPHOTERICIN B
     Indication: Central nervous system infection
     Dosage: UNK
     Route: 065
  9. AMPHOTERICIN B [Suspect]
     Active Substance: AMPHOTERICIN B
     Dosage: UNK, INJECTION
     Route: 065
  10. VANCOMYCIN HYDROCHLORIDE [Suspect]
     Active Substance: VANCOMYCIN HYDROCHLORIDE
     Indication: Central nervous system infection
     Dosage: UNK
     Route: 065

REACTIONS (7)
  - Central nervous system lesion [Unknown]
  - Ataxia [Unknown]
  - Dysphagia [Unknown]
  - Somnolence [Unknown]
  - Vertigo [Unknown]
  - Pyrexia [Unknown]
  - Off label use [Unknown]
